FAERS Safety Report 10364190 (Version 4)
Quarter: 2015Q1

REPORT INFORMATION
  Report Type: Report from Study
  Country: TW (occurrence: TW)
  Receive Date: 20140806
  Receipt Date: 20150304
  Transmission Date: 20150720
  Serious: Yes (Hospitalization)
  Sender: FDA-Public Use
  Company Number: TW-ROCHE-1386371

PATIENT
  Age: 56 Year
  Sex: Female
  Weight: 57.6 kg

DRUGS (27)
  1. OBINUTUZUMAB [Suspect]
     Active Substance: OBINUTUZUMAB
     Indication: DIFFUSE LARGE B-CELL LYMPHOMA
     Dosage: DATE OF MOST RECENT DOSE (250 ML AT DOSE CONCENTRATION OF 4 MG/ML) PRIOR TO AE ONSET: 15/APR/2014.
     Route: 042
     Dates: start: 20140415
  2. APREPITANT. [Concomitant]
     Active Substance: APREPITANT
     Indication: NAUSEA
     Route: 065
     Dates: start: 20140415, end: 20140808
  3. MIRTAZAPINE. [Concomitant]
     Active Substance: MIRTAZAPINE
     Indication: DYSTHYMIC DISORDER
     Route: 065
     Dates: start: 20140424, end: 20140716
  4. TROPISETRON [Concomitant]
     Active Substance: TROPISETRON
     Indication: NAUSEA
     Route: 065
     Dates: start: 20140415, end: 20140808
  5. FLUDIAZEPAM [Concomitant]
     Active Substance: FLUDIAZEPAM
     Indication: INSOMNIA
     Route: 065
     Dates: end: 20140424
  6. MELATONIN [Concomitant]
     Active Substance: MELATONIN
     Indication: INSOMNIA
     Route: 065
     Dates: end: 20140415
  7. ULCOL [Concomitant]
     Route: 065
     Dates: end: 20140423
  8. QUETIAPINE [Concomitant]
     Active Substance: QUETIAPINE
     Indication: DYSTHYMIC DISORDER
     Route: 065
     Dates: start: 20140428
  9. CYCLOPHOSPHAMIDE. [Suspect]
     Active Substance: CYCLOPHOSPHAMIDE
     Indication: DIFFUSE LARGE B-CELL LYMPHOMA
     Dosage: DOSE OF LAST CYCLOPHOSPHAMIDE TAKEN: 1087 MG ON 16/APR/2014, 1160 MG ON 09/JUL/2014 PRIOR TO THE EVE
     Route: 042
     Dates: start: 20140416
  10. KAOLIN [Concomitant]
     Active Substance: KAOLIN
     Indication: DIARRHOEA
     Route: 065
     Dates: start: 20140427
  11. DOXORUBICIN [Suspect]
     Active Substance: DOXORUBICIN
     Indication: DIFFUSE LARGE B-CELL LYMPHOMA
     Dosage: DOSE OF LAST DOXORUBICIN TAKEN WAS 72 MG ON 16/APR/2014, 78 MG ON 09/JUL/2014 PRIOR TO THE EVENT FEV
     Route: 042
     Dates: start: 20140416
  12. PREDNISONE. [Suspect]
     Active Substance: PREDNISONE
     Indication: DIFFUSE LARGE B-CELL LYMPHOMA
     Dosage: DOSE OF LAST PREDNISONE TAKEN: 100 MG ON 19/APR/2014 AND ON 12/JUL/2014
     Route: 048
     Dates: start: 20140415
  13. LANSOPRAZOLE. [Concomitant]
     Active Substance: LANSOPRAZOLE
     Indication: GASTRIC ULCER
  14. LOPERAMIDE [Concomitant]
     Active Substance: LOPERAMIDE
     Indication: DIARRHOEA
     Route: 065
     Dates: start: 20140429
  15. METOCLOPRAMIDE. [Concomitant]
     Active Substance: METOCLOPRAMIDE
     Indication: PROPHYLAXIS OF NAUSEA AND VOMITING
     Route: 065
     Dates: start: 20140415, end: 20140808
  16. ACETAMINOPHEN. [Concomitant]
     Active Substance: ACETAMINOPHEN
     Indication: MIGRAINE
     Route: 065
     Dates: start: 20140419
  17. ACETAMINOPHEN. [Concomitant]
     Active Substance: ACETAMINOPHEN
     Indication: HEADACHE
  18. ALPRAZOLAM. [Concomitant]
     Active Substance: ALPRAZOLAM
     Indication: INSOMNIA
     Route: 065
     Dates: start: 20140424, end: 20140516
  19. PECTIN [Concomitant]
     Active Substance: PECTIN
     Indication: DIARRHOEA
     Route: 065
     Dates: start: 20140427
  20. CLONAZEPAM. [Concomitant]
     Active Substance: CLONAZEPAM
     Indication: INSOMNIA
     Route: 065
     Dates: start: 20140424
  21. ZOLPIDEM [Concomitant]
     Active Substance: ZOLPIDEM\ZOLPIDEM TARTRATE
     Indication: INSOMNIA
     Route: 065
     Dates: start: 20140421, end: 20140428
  22. SIMETHICONE [Concomitant]
     Active Substance: DIMETHICONE\SILICON DIOXIDE\SIMETHICONE
     Indication: ABDOMINAL DISTENSION
     Route: 065
     Dates: start: 20140427
  23. VINCRISTINE [Suspect]
     Active Substance: VINCRISTINE
     Indication: DIFFUSE LARGE B-CELL LYMPHOMA
     Dosage: DOSE OF LAST VINCRISTINE TAKEN WAS 100MG ON 16/APR/2014 AND 09/JUL/2014
     Route: 040
     Dates: start: 20140416
  24. ENTECAVIR. [Concomitant]
     Active Substance: ENTECAVIR
     Indication: HEPATITIS B CORE ANTIBODY POSITIVE
     Route: 065
     Dates: start: 20140416
  25. ESTAZOLAM. [Concomitant]
     Active Substance: ESTAZOLAM
     Indication: DYSTHYMIC DISORDER
     Route: 065
     Dates: start: 20140424
  26. ESTAZOLAM. [Concomitant]
     Active Substance: ESTAZOLAM
     Indication: INSOMNIA
  27. PETHIDINE [Concomitant]
     Active Substance: MEPERIDINE
     Indication: PAIN
     Route: 065
     Dates: start: 20140424, end: 20140424

REACTIONS (5)
  - Pneumonitis [Recovered/Resolved]
  - Emotional distress [Recovered/Resolved]
  - Enterocolitis infectious [Recovered/Resolved]
  - Pyrexia [Recovered/Resolved]
  - Neutropenia [Recovered/Resolved]

NARRATIVE: CASE EVENT DATE: 20140417
